FAERS Safety Report 23643382 (Version 3)
Quarter: 2024Q2

REPORT INFORMATION
  Report Type: Spontaneous
  Country: US (occurrence: US)
  Receive Date: 20240318
  Receipt Date: 20240408
  Transmission Date: 20240715
  Serious: No
  Sender: FDA-Public Use
  Company Number: US-PFIZER INC-202400064653

PATIENT
  Sex: Female

DRUGS (1)
  1. GENOTROPIN [Suspect]
     Active Substance: SOMATROPIN
     Dosage: UNK

REACTIONS (6)
  - Nausea [Unknown]
  - Device use issue [Unknown]
  - Product odour abnormal [Unknown]
  - Exposure via skin contact [Unknown]
  - Device leakage [Unknown]
  - Device information output issue [Unknown]

NARRATIVE: CASE EVENT DATE: 20240313
